FAERS Safety Report 7947268-2 (Version None)
Quarter: 2011Q4

REPORT INFORMATION
  Report Type: 
  Country: None (occurrence: None)
  Receive Date: 20111129
  Receipt Date: 20111124
  Transmission Date: 20120403
  Serious: Yes (Life-Threatening)
  Sender: FDA-Public Use
  Company Number: FR-ASTRAZENECA-2011SE71734

PATIENT
  Age: 37 Year
  Sex: Male

DRUGS (5)
  1. QUETIAPINE FUMARATE [Suspect]
     Indication: BIPOLAR I DISORDER
     Route: 048
     Dates: start: 20111117, end: 20111122
  2. LITHIUM CARBONATE [Concomitant]
  3. QUETIAPINE FUMARATE [Suspect]
     Route: 048
     Dates: start: 20111122, end: 20111122
  4. RISPERIDONE [Concomitant]
     Dates: end: 20111117
  5. LAMOTRIGINE [Concomitant]

REACTIONS (2)
  - COMA [None]
  - SUICIDE ATTEMPT [None]
